FAERS Safety Report 22350380 (Version 3)
Quarter: 2023Q2

REPORT INFORMATION
  Report Type: Report from Study
  Country: BR (occurrence: BR)
  Receive Date: 20230522
  Receipt Date: 20230616
  Transmission Date: 20230721
  Serious: Yes (Hospitalization, Other)
  Sender: FDA-Public Use
  Company Number: BR-TAKEDA-BR202014039

PATIENT
  Age: 81 Year
  Sex: Female
  Weight: 49 kg

DRUGS (21)
  1. HUMAN IMMUNOGLOBULIN G\HYALURONIDASE RECOMBINANT HUMAN [Suspect]
     Active Substance: HUMAN IMMUNOGLOBULIN G\HYALURONIDASE RECOMBINANT HUMAN
     Indication: Primary immunodeficiency syndrome
     Dosage: 1 DOSAGE FORM, Q4WEEKS
     Route: 058
  2. HUMAN IMMUNOGLOBULIN G\HYALURONIDASE RECOMBINANT HUMAN [Suspect]
     Active Substance: HUMAN IMMUNOGLOBULIN G\HYALURONIDASE RECOMBINANT HUMAN
     Dosage: 250 MILLILITER
     Route: 065
  3. VONOPRAZAN FUMARATE [Suspect]
     Active Substance: VONOPRAZAN FUMARATE
     Indication: Product used for unknown indication
     Dosage: 1 DOSAGE FORM
     Route: 065
  4. ERTAPENEM [Suspect]
     Active Substance: ERTAPENEM
     Indication: Pneumonia
     Dosage: UNK
     Route: 065
  5. PURAN [Concomitant]
     Active Substance: LEVOTHYROXINE SODIUM
     Dosage: UNK
     Route: 065
  6. JARDIANCE [Concomitant]
     Active Substance: EMPAGLIFLOZIN
     Dosage: UNK
     Route: 065
  7. ENTRESTO [Concomitant]
     Active Substance: SACUBITRIL\VALSARTAN
     Dosage: UNK
     Route: 065
  8. LASIX [Concomitant]
     Active Substance: FUROSEMIDE
     Dosage: 1 DOSAGE FORM
     Route: 065
  9. XARELTO [Concomitant]
     Active Substance: RIVAROXABAN
     Dosage: 2.5 MILLIGRAM
     Route: 065
  10. PREDNISOLONE [Concomitant]
     Active Substance: PREDNISOLONE
     Dosage: 1 DOSAGE FORM
     Route: 065
  11. BISOPROLOL FUMARATE [Concomitant]
     Active Substance: BISOPROLOL FUMARATE
     Dosage: UNK
     Route: 065
  12. AMIODARONE HYDROCHLORIDE [Concomitant]
     Active Substance: AMIODARONE HYDROCHLORIDE
     Dosage: 1 DOSAGE FORM
     Route: 065
  13. ACYCLOVIR [Concomitant]
     Active Substance: ACYCLOVIR
     Dosage: 1 DOSAGE FORM
     Route: 065
  14. PHOSPHOR [Concomitant]
     Dosage: 1 DOSAGE FORM
     Route: 065
  15. ASPIRIN [Concomitant]
     Active Substance: ASPIRIN
     Dosage: UNK
     Route: 065
  16. SPIRONOLACTONE [Concomitant]
     Active Substance: SPIRONOLACTONE
     Dosage: 1 DOSAGE FORM
     Route: 065
  17. CEWIN [Concomitant]
     Active Substance: ASCORBIC ACID
     Dosage: 1 DOSAGE FORM
     Route: 065
  18. ROSUVASTATIN CALCIUM [Concomitant]
     Active Substance: ROSUVASTATIN CALCIUM
     Dosage: 1 DOSAGE FORM
     Route: 065
  19. XALOFTAL [Concomitant]
     Dosage: UNK
     Route: 065
  20. CHOLECALCIFEROL [Concomitant]
     Active Substance: CHOLECALCIFEROL
     Dosage: 1 DOSAGE FORM
     Route: 065
  21. AMIODARONE [Concomitant]
     Active Substance: AMIODARONE
     Dosage: UNK
     Route: 065

REACTIONS (24)
  - Dyspnoea [Unknown]
  - Ischaemic cardiomyopathy [Unknown]
  - Pneumonia [Unknown]
  - Pulmonary fibrosis [Unknown]
  - Breast cancer [Unknown]
  - Chronic kidney disease [Unknown]
  - Cardiorenal syndrome [Unknown]
  - Hypothyroidism [Unknown]
  - Hypercholesterolaemia [Unknown]
  - Osteoporosis [Unknown]
  - Hypervolaemia [Unknown]
  - Vertebral lesion [Unknown]
  - Herpes simplex [Unknown]
  - Blood urea increased [Unknown]
  - Blood creatinine abnormal [Unknown]
  - Glomerular filtration rate decreased [Unknown]
  - Blood gases abnormal [Unknown]
  - Blood sodium decreased [Unknown]
  - Blood potassium decreased [Unknown]
  - Generalised oedema [Unknown]
  - Cardiac failure [Unknown]
  - Blood pressure increased [Unknown]
  - Bradycardia [Unknown]
  - Product availability issue [Unknown]

NARRATIVE: CASE EVENT DATE: 20200401
